FAERS Safety Report 7242192-5 (Version None)
Quarter: 2011Q1

REPORT INFORMATION
  Report Type: 
  Country: None (occurrence: None)
  Receive Date: 20110124
  Receipt Date: 20110117
  Transmission Date: 20110831
  Serious: Yes (Hospitalization)
  Sender: FDA-Public Use
  Company Number: IT-GENENTECH-312586

PATIENT
  Age: 71 Year
  Sex: Female

DRUGS (1)
  1. ACTIVASE [Suspect]
     Indication: ISCHAEMIC STROKE
     Dosage: 0.9 MG/KG, UNK
     Dates: start: 20090101, end: 20090101

REACTIONS (1)
  - GUILLAIN-BARRE SYNDROME [None]
